FAERS Safety Report 8200675-5 (Version None)
Quarter: 2012Q1

REPORT INFORMATION
  Report Type: 
  Country: None (occurrence: None)
  Receive Date: 20120312
  Receipt Date: 20120305
  Transmission Date: 20120608
  Serious: Yes (Hospitalization)
  Sender: FDA-Public Use
  Company Number: US-ASTELLAS-2012US002557

PATIENT
  Sex: Female

DRUGS (2)
  1. ERLOTINIB HYDROCHLORIDE [Suspect]
     Indication: NON-SMALL CELL LUNG CANCER
     Dosage: 150 MG, UID/QD
     Route: 048
     Dates: start: 20111002, end: 20111226
  2. ERLOTINIB HYDROCHLORIDE [Suspect]
     Dosage: 100 MG, Q3D
     Route: 048
     Dates: start: 20120302

REACTIONS (5)
  - ARTERIAL RUPTURE [None]
  - RASH [None]
  - HAEMATEMESIS [None]
  - WEIGHT DECREASED [None]
  - DIARRHOEA HAEMORRHAGIC [None]
